FAERS Safety Report 9127678 (Version 7)
Quarter: 2014Q2

REPORT INFORMATION
  Report Type: Report from Study
  Country: IT (occurrence: IT)
  Receive Date: 20130122
  Receipt Date: 20140623
  Transmission Date: 20141212
  Serious: Yes (Death, Disabling, Other)
  Sender: FDA-Public Use
  Company Number: IT-ROCHE-1173600

PATIENT
  Age: 53 Year
  Sex: Female

DRUGS (6)
  1. VEMURAFENIB [Suspect]
     Indication: METASTATIC MALIGNANT MELANOMA
     Route: 048
     Dates: start: 20120828, end: 20130414
  2. VEMURAFENIB [Suspect]
     Route: 048
     Dates: start: 20121116, end: 20130411
  3. CARDIOASPIRIN [Concomitant]
     Route: 048
     Dates: end: 20130411
  4. DEPALGOS [Concomitant]
     Indication: PAIN
     Route: 048
     Dates: end: 20130411
  5. LASIX [Concomitant]
     Indication: POLYURIA
     Route: 048
     Dates: end: 20130411
  6. TRIMETHOPRIM [Concomitant]
     Indication: INFECTION
     Dosage: 160 MG+180MG
     Route: 048
     Dates: start: 20121011

REACTIONS (10)
  - Respiratory failure [Fatal]
  - Anaemia [Not Recovered/Not Resolved]
  - Localised infection [Not Recovered/Not Resolved]
  - Leg amputation [Recovered/Resolved]
  - Pain in extremity [Unknown]
  - Erythema [Recovered/Resolved]
  - Hyperkeratosis [Recovered/Resolved]
  - Constipation [Recovered/Resolved]
  - Herpes zoster [Recovered/Resolved]
  - Decreased appetite [Not Recovered/Not Resolved]
